FAERS Safety Report 9885422 (Version 1)
Quarter: 2014Q1

REPORT INFORMATION
  Report Type: Spontaneous
  Country: US (occurrence: US)
  Receive Date: 20140210
  Receipt Date: 20140210
  Transmission Date: 20141002
  Serious: Yes (Hospitalization, Other)
  Sender: FDA-Public Use
  Company Number: US-BAYER-2014-020801

PATIENT
  Age: 50 Year
  Sex: Male

DRUGS (1)
  1. HELIXATE FS [Suspect]

REACTIONS (1)
  - Haemorrhage [Not Recovered/Not Resolved]
